FAERS Safety Report 9339498 (Version 1)
Quarter: 2013Q2

REPORT INFORMATION
  Report Type: Spontaneous
  Country: US (occurrence: None)
  Receive Date: 20130607
  Receipt Date: 20130607
  Transmission Date: 20140414
  Serious: Yes (Other)
  Sender: FDA-Public Use
  Company Number: None

PATIENT
  Age: 45 Year
  Sex: Female
  Weight: 97.98 kg

DRUGS (4)
  1. HYDROCHLOROTHIAZIDE [Suspect]
     Indication: HYPERTENSION
     Dosage: 1 PILLS  ONCE A DAY  BY MOUTH
     Route: 048
  2. HYDROCHLOROTHIAZIDE [Suspect]
     Indication: OEDEMA
     Dosage: 1 PILLS  ONCE A DAY  BY MOUTH
     Route: 048
  3. ZOLOFT [Concomitant]
  4. VITAMIN D-3 [Concomitant]

REACTIONS (8)
  - Sunburn [None]
  - Pruritus [None]
  - Drug hypersensitivity [None]
  - Dizziness [None]
  - Nausea [None]
  - Constipation [None]
  - Vertigo [None]
  - Skin discolouration [None]
